FAERS Safety Report 5044083-7 (Version None)
Quarter: 2006Q2

REPORT INFORMATION
  Report Type: 
  Country: None (occurrence: None)
  Receive Date: 20060629
  Receipt Date: 20060621
  Transmission Date: 20061013
  Serious: Yes (Other)
  Sender: FDA-Public Use
  Company Number: CHNY2006BR01791

PATIENT
  Age: 18 Year
  Sex: Female
  Weight: 90 kg

DRUGS (1)
  1. TRIMENDAL [Suspect]
     Indication: INFLUENZA
     Dosage: 1 DF, TID; ORAL
     Route: 048
     Dates: start: 20060607

REACTIONS (6)
  - ASTHMATIC CRISIS [None]
  - COUGH [None]
  - DYSPNOEA [None]
  - FATIGUE [None]
  - HYPERSENSITIVITY [None]
  - SPEECH DISORDER [None]
